FAERS Safety Report 8382408 (Version 2)
Quarter: 2012Q4

REPORT INFORMATION
  Report Type: 
  Country: BR (occurrence: BR)
  Receive Date: 20120201
  Receipt Date: 20121129
  Transmission Date: 20130627
  Serious: Yes (Hospitalization)
  Sender: FDA-Public Use
  Company Number: PHHY2012BR005573

PATIENT
  Sex: Female
  Weight: 46 kg

DRUGS (7)
  1. DIOVAN AMLO FIX [Suspect]
     Indication: HYPERTENSION
     Dosage: 1 DF (160 mg vals and 5 mg amlo), daily
     Route: 048
     Dates: end: 201112
  2. DIOVAN AMLO FIX [Suspect]
     Dosage: 0.5 DF (160 mg vals and 5 mg amlo), daily
  3. SIMVASTATIN [Concomitant]
     Indication: BLOOD CHOLESTEROL INCREASED
     Dosage: 1 DF, TID
     Route: 048
  4. METICORTEN [Concomitant]
     Indication: ANAEMIA
     Dosage: 40 mg daily
     Dates: start: 201112
  5. ENDOFOLIN [Concomitant]
     Indication: ANAEMIA
     Dosage: 1 DF (5mg) daily
     Route: 048
     Dates: start: 201112
  6. OMEPRAZOLE [Concomitant]
     Indication: PROPHYLAXIS
     Dosage: 1 DFdaily
     Route: 048
     Dates: start: 201112
  7. CALCIUM [Concomitant]
     Indication: OSTEOPOROSIS
     Dosage: 2 DF, QD
     Route: 048

REACTIONS (4)
  - Anaemia [Not Recovered/Not Resolved]
  - Haemoglobin decreased [Recovering/Resolving]
  - Weight decreased [Unknown]
  - Blood pressure decreased [Not Recovered/Not Resolved]
